FAERS Safety Report 10786302 (Version 1)
Quarter: 2015Q1

REPORT INFORMATION
  Report Type: Spontaneous
  Country: GB (occurrence: GB)
  Receive Date: 20150211
  Receipt Date: 20150211
  Transmission Date: 20150721
  Serious: Yes (Hospitalization)
  Sender: FDA-Public Use
  Company Number: GB-WATSON-2015-01580

PATIENT
  Age: 59 Year
  Sex: Male

DRUGS (1)
  1. METRONIDAZOLE. [Suspect]
     Active Substance: METRONIDAZOLE
     Indication: TOOTH ABSCESS
     Dosage: 6 DF, TOTAL; THRICE A DAY FOR 2 DAY
     Route: 048
     Dates: start: 201410

REACTIONS (2)
  - Seizure [Recovered/Resolved]
  - General physical health deterioration [Recovered/Resolved]

NARRATIVE: CASE EVENT DATE: 201410
